FAERS Safety Report 9399441 (Version 3)
Quarter: 2014Q1

REPORT INFORMATION
  Report Type: Spontaneous
  Country: US (occurrence: US)
  Receive Date: 20130715
  Receipt Date: 20140123
  Transmission Date: 20141002
  Serious: Yes (Hospitalization)
  Sender: FDA-Public Use
  Company Number: US-BIOGENIDEC-2013BI054905

PATIENT
  Age: 40 Year
  Sex: Female

DRUGS (2)
  1. AVONEX [Suspect]
     Indication: MULTIPLE SCLEROSIS
     Route: 030
     Dates: start: 201304
  2. AVONEX [Suspect]
     Indication: MULTIPLE SCLEROSIS
     Route: 030
     Dates: start: 20130502, end: 20130611

REACTIONS (15)
  - Multiple sclerosis [Unknown]
  - Brain oedema [Unknown]
  - Encephalitis [Unknown]
  - Marburg^s variant multiple sclerosis [Not Recovered/Not Resolved]
  - Multiple sclerosis relapse [Recovered/Resolved]
  - Mobility decreased [Recovered/Resolved]
  - Hypoaesthesia [Unknown]
  - Mental impairment [Unknown]
  - Gallbladder disorder [Recovered/Resolved]
  - Fear [Unknown]
  - Plasmapheresis [Unknown]
  - Suicidal ideation [Recovered/Resolved]
  - Thyroid function test abnormal [Unknown]
  - Depression [Unknown]
  - Paraesthesia [Unknown]
